FAERS Safety Report 16263233 (Version 2)
Quarter: 2020Q3

REPORT INFORMATION
  Report Type: Spontaneous
  Country: FR (occurrence: FR)
  Receive Date: 20190502
  Receipt Date: 20200908
  Transmission Date: 20201102
  Serious: Yes (Hospitalization)
  Sender: FDA-Public Use
  Company Number: FR-AUROBINDO-AUR-APL-2019-023383

PATIENT
  Age: 69 Year
  Sex: Male

DRUGS (8)
  1. ISAVUCONAZOLE [Interacting]
     Active Substance: ISAVUCONAZOLE
     Indication: CEREBRAL ASPERGILLOSIS
  2. IMMUNGLOBULIN [Concomitant]
     Active Substance: HUMAN IMMUNOGLOBULIN G
     Indication: CHRONIC LYMPHOCYTIC LEUKAEMIA
     Dosage: UNK
     Route: 065
  3. ISAVUCONAZOLE [Interacting]
     Active Substance: ISAVUCONAZOLE
     Indication: ASPERGILLUS INFECTION
     Dosage: 300 MILLIGRAM, ONCE A DAY (DOSE INCREASED TO 300MG DAILY TO MAINTAIN THE PLASMA DRUG LEVEL ABOVE 2.8
     Route: 065
  4. AMPHOTERICIN B. [Concomitant]
     Active Substance: AMPHOTERICIN B
     Indication: ASPERGILLUS INFECTION
     Dosage: 3 MILLIGRAM/KILOGRAM, ONCE A DAY
     Route: 065
  5. ISAVUCONAZOLE [Interacting]
     Active Substance: ISAVUCONAZOLE
     Indication: BRONCHOPULMONARY ASPERGILLOSIS
  6. METHYLPREDNISOLONE. [Interacting]
     Active Substance: METHYLPREDNISOLONE
     Indication: BRAIN OEDEMA
     Dosage: UNK
     Route: 065
  7. VORICONAZOLE POWDER FOR SOLUTION FOR INFUSION [Suspect]
     Active Substance: VORICONAZOLE
     Indication: BRONCHOPULMONARY ASPERGILLOSIS
     Dosage: 300 MILLIGRAM, TWO TIMES A DAY (600 MG, DAILY)
     Route: 042
  8. VORICONAZOLE POWDER FOR SOLUTION FOR INFUSION [Interacting]
     Active Substance: VORICONAZOLE
     Dosage: 350 MILLIGRAM, TWO TIMES A DAY (700 MG, DAILY)
     Route: 042

REACTIONS (3)
  - Drug interaction [Recovered/Resolved]
  - Drug level below therapeutic [Recovered/Resolved]
  - Drug level decreased [Recovered/Resolved]
